FAERS Safety Report 21746934 (Version 2)
Quarter: 2022Q4

REPORT INFORMATION
  Report Type: Spontaneous
  Country: US (occurrence: US)
  Receive Date: 20221219
  Receipt Date: 20221226
  Transmission Date: 20230112
  Serious: No
  Sender: FDA-Public Use
  Company Number: US-SA-SAC20221215000848

PATIENT
  Age: 54 Year
  Sex: Male
  Weight: 86.1 kg

DRUGS (12)
  1. NEXVIAZYME [Suspect]
     Active Substance: AVALGLUCOSIDASE ALFA-NGPT
     Indication: Glycogen storage disease type II
     Dosage: 1800 MG, QOW
     Route: 042
     Dates: start: 20221005
  2. DIPHENHYDRAMINE [Concomitant]
     Active Substance: DIPHENHYDRAMINE
  3. EPINEPHRINE [Concomitant]
     Active Substance: EPINEPHRINE
  4. LISINOPRIL [Concomitant]
     Active Substance: LISINOPRIL
  5. STERILE WATER [Concomitant]
     Active Substance: WATER
  6. PRILOSEC [Concomitant]
     Active Substance: OMEPRAZOLE MAGNESIUM
  7. XTAMPZA ER [Concomitant]
     Active Substance: OXYCODONE
  8. DOXYLAMINE SUCCINATE [Concomitant]
     Active Substance: DOXYLAMINE SUCCINATE
  9. PREGABALIN [Concomitant]
     Active Substance: PREGABALIN
  10. SODIUM CHLORIDE [Concomitant]
     Active Substance: SODIUM CHLORIDE
  11. LIDOCAINE [Concomitant]
     Active Substance: LIDOCAINE
  12. DEXTROSE [Concomitant]
     Active Substance: DEXTROSE

REACTIONS (3)
  - Malaise [Unknown]
  - Nasopharyngitis [Unknown]
  - Fatigue [Unknown]

NARRATIVE: CASE EVENT DATE: 20221201
